FAERS Safety Report 19720939 (Version 5)
Quarter: 2023Q4

REPORT INFORMATION
  Report Type: Report from Study
  Country: EG (occurrence: EG)
  Receive Date: 20210819
  Receipt Date: 20231227
  Transmission Date: 20240110
  Serious: Yes (Other)
  Sender: FDA-Public Use
  Company Number: NVSC2021EG185017

PATIENT
  Age: 31 Year
  Sex: Female

DRUGS (5)
  1. COSENTYX [Suspect]
     Active Substance: SECUKINUMAB
     Indication: Psoriasis
     Dosage: 1 DF, QMO
     Route: 058
     Dates: start: 20190101, end: 202005
  2. COSENTYX [Suspect]
     Active Substance: SECUKINUMAB
     Indication: Psoriatic arthropathy
     Dosage: 1 DF, QMO
     Route: 058
     Dates: start: 202101, end: 202106
  3. COSENTYX [Suspect]
     Active Substance: SECUKINUMAB
     Dosage: 150 MG
     Route: 065
     Dates: start: 202107, end: 20210715
  4. COSENTYX [Suspect]
     Active Substance: SECUKINUMAB
     Dosage: 1 DF, QMO
     Route: 058
     Dates: end: 202108
  5. VITAMIN D [Concomitant]
     Active Substance: VITAMIN D NOS
     Indication: Product used for unknown indication
     Dosage: UNK
     Route: 065

REACTIONS (11)
  - Staphylococcal infection [Recovered/Resolved]
  - Tachycardia [Not Recovered/Not Resolved]
  - Dizziness [Not Recovered/Not Resolved]
  - Thyroid function test abnormal [Recovered/Resolved]
  - Liver function test increased [Recovered/Resolved]
  - Furuncle [Recovered/Resolved]
  - Rheumatoid arthritis [Recovered/Resolved]
  - Pyrexia [Recovered/Resolved]
  - Staphylococcal abscess [Recovered/Resolved]
  - Decreased immune responsiveness [Unknown]
  - Intentional dose omission [Unknown]

NARRATIVE: CASE EVENT DATE: 20200101
